FAERS Safety Report 4828557-7 (Version None)
Quarter: 2005Q4

REPORT INFORMATION
  Report Type: 
  Country: None (occurrence: None)
  Receive Date: 20051110
  Receipt Date: 20051101
  Transmission Date: 20060501
  Serious: Yes (Other)
  Sender: FDA-Public Use
  Company Number: BR-2005-023309

PATIENT
  Age: 75 Year
  Sex: Female

DRUGS (1)
  1. MAGNEVIST [Suspect]
     Indication: NUCLEAR MAGNETIC RESONANCE IMAGING ABDOMINAL
     Dosage: 15 ML, 1DOSE, INTRAVENOUS
     Route: 042
     Dates: start: 20051028, end: 20051028

REACTIONS (2)
  - ANAPHYLACTIC SHOCK [None]
  - PROCEDURAL COMPLICATION [None]
